FAERS Safety Report 7426139-4 (Version None)
Quarter: 2011Q2

REPORT INFORMATION
  Report Type: 
  Country: None (occurrence: None)
  Receive Date: 20110420
  Receipt Date: 20110411
  Transmission Date: 20111010
  Serious: Yes (Other)
  Sender: FDA-Public Use
  Company Number: PHHY2010TW63977

PATIENT
  Sex: Female
  Weight: 58 kg

DRUGS (2)
  1. ZOLEDRONIC ACID [Suspect]
     Indication: METASTASES TO BONE
     Dosage: 4MG /DAY
     Route: 042
     Dates: start: 20100408, end: 20100913
  2. ZOLEDRONIC ACID [Suspect]
     Dosage: 4 MG, DAILY
     Route: 042
     Dates: start: 20100408, end: 20101001

REACTIONS (8)
  - OSTEONECROSIS OF JAW [None]
  - OSTEOMYELITIS CHRONIC [None]
  - STOMATITIS [None]
  - BONE DISORDER [None]
  - PAIN IN JAW [None]
  - PERIODONTITIS [None]
  - SWELLING [None]
  - ORAL DISORDER [None]
